FAERS Safety Report 5581041-8 (Version None)
Quarter: 2007Q4

REPORT INFORMATION
  Report Type: 
  Country: None (occurrence: None)
  Receive Date: 20071227
  Receipt Date: 20071212
  Transmission Date: 20080405
  Serious: Yes (Hospitalization)
  Sender: FDA-Public Use
  Company Number: GXKR2007DE10655

PATIENT
  Age: 77 Year
  Sex: Female

DRUGS (5)
  1. CITALOPRAM HYDROBROMIDE [Suspect]
     Indication: MAJOR DEPRESSION
     Dosage: 20 MG, DAILY
     Dates: start: 20060701
  2. RISPERIDONE [Suspect]
     Indication: MAJOR DEPRESSION
     Dosage: 2 MG, DAILY
     Dates: start: 20060701
  3. CO-TRIMOXAZOLE (NGX)(SULFAMTHOXAZOLE, TRIMETHOPRIM) [Suspect]
     Indication: CYSTITIS
     Dosage: 960 MG, TID
     Dates: start: 20060101
  4. RAMIPRIL [Concomitant]
  5. NIFEDIPINE [Concomitant]

REACTIONS (5)
  - ATRIOVENTRICULAR BLOCK FIRST DEGREE [None]
  - DRUG INTERACTION [None]
  - ELECTROCARDIOGRAM QT PROLONGED [None]
  - SINUS BRADYCARDIA [None]
  - TORSADE DE POINTES [None]
